FAERS Safety Report 4734375-0 (Version None)
Quarter: 2005Q3

REPORT INFORMATION
  Report Type: 
  Country: None (occurrence: None)
  Receive Date: 20050804
  Receipt Date: 20050726
  Transmission Date: 20060218
  Serious: Yes (Hospitalization)
  Sender: FDA-Public Use
  Company Number: PHFR2005GB02590

PATIENT
  Sex: Female

DRUGS (5)
  1. CLOZARIL [Suspect]
     Dosage: 200 MG OVERDOSE
     Route: 048
  2. CARBAMAZEPINE [Concomitant]
  3. OLANZAPINE [Concomitant]
  4. LORAZEPAM [Concomitant]
  5. TETRABENAZINE [Concomitant]

REACTIONS (3)
  - ACCIDENTAL EXPOSURE [None]
  - MEDICATION ERROR [None]
  - SOMNOLENCE [None]
